FAERS Safety Report 25008955 (Version 3)
Quarter: 2025Q3

REPORT INFORMATION
  Report Type: Report from Study
  Country: EU (occurrence: EU)
  Receive Date: 20250225
  Receipt Date: 20250909
  Transmission Date: 20251020
  Serious: Yes (Death, Hospitalization)
  Sender: ABBVIE
  Company Number: EU-ABBVIE-5899724

PATIENT
  Age: 74 Year
  Sex: Male

DRUGS (2)
  1. FOSCARBIDOPA\FOSLEVODOPA [Suspect]
     Active Substance: FOSCARBIDOPA\FOSLEVODOPA
     Indication: Parkinson^s disease
     Route: 058
     Dates: start: 20240701
  2. FOSCARBIDOPA\FOSLEVODOPA [Suspect]
     Active Substance: FOSCARBIDOPA\FOSLEVODOPA
     Route: 058

REACTIONS (8)
  - General physical health deterioration [Fatal]
  - Mobility decreased [Unknown]
  - Sepsis [Not Recovered/Not Resolved]
  - Hallucination [Not Recovered/Not Resolved]
  - Delirium [Not Recovered/Not Resolved]
  - Organ failure [Fatal]
  - On and off phenomenon [Unknown]
  - Pyrexia [Fatal]

NARRATIVE: CASE EVENT DATE: 20240101
